FAERS Safety Report 11131116 (Version 2)
Quarter: 2015Q2

REPORT INFORMATION
  Report Type: Spontaneous
  Country: JP (occurrence: JP)
  Receive Date: 20150522
  Receipt Date: 20150617
  Transmission Date: 20150821
  Serious: Yes (Other)
  Sender: FDA-Public Use
  Company Number: JP-ROCHE-1582005

PATIENT
  Age: 36 Year
  Sex: Female

DRUGS (16)
  1. MEPTIN [Concomitant]
     Active Substance: PROCATEROL HYDROCHLORIDE
  2. PREDONINE [Concomitant]
     Active Substance: PREDNISOLONE\PREDNISOLONE ACETATE\PREDNISOLONE SODIUM SUCCINATE
     Route: 065
     Dates: start: 201312
  3. GASTER [Concomitant]
     Active Substance: FAMOTIDINE
  4. MYSLEE [Concomitant]
     Active Substance: ZOLPIDEM TARTRATE
  5. XOLAIR [Suspect]
     Active Substance: OMALIZUMAB
     Indication: ASTHMA
     Route: 058
     Dates: start: 20150515
  6. JZOLOFT [Concomitant]
     Active Substance: SERTRALINE HYDROCHLORIDE
  7. MYONAL (JAPAN) [Concomitant]
     Active Substance: EPERISONE HYDROCHLORIDE
  8. MUCOSTA [Concomitant]
     Active Substance: REBAMIPIDE
  9. SYMBICORT [Concomitant]
     Active Substance: BUDESONIDE\FORMOTEROL FUMARATE DIHYDRATE
  10. CARBOCISTEINE [Concomitant]
     Active Substance: CARBOCYSTEINE
  11. ROHYPNOL [Concomitant]
     Active Substance: FLUNITRAZEPAM
     Route: 065
  12. ALLERMIST [Concomitant]
     Active Substance: FLUTICASONE FUROATE
  13. SOLANAX [Concomitant]
     Active Substance: ALPRAZOLAM
  14. ONON [Concomitant]
     Active Substance: PRANLUKAST
  15. OLOPATADINE [Concomitant]
     Active Substance: OLOPATADINE
  16. SPIRIVA [Concomitant]
     Active Substance: TIOTROPIUM BROMIDE MONOHYDRATE

REACTIONS (3)
  - Nausea [Recovering/Resolving]
  - Hypoaesthesia [Recovered/Resolved]
  - Vomiting [Recovering/Resolving]

NARRATIVE: CASE EVENT DATE: 20150515
